FAERS Safety Report 13019280 (Version 1)
Quarter: 2016Q4

REPORT INFORMATION
  Report Type: Spontaneous
  Country: US (occurrence: US)
  Receive Date: 20161212
  Receipt Date: 20161212
  Transmission Date: 20170207
  Serious: Yes (Other)
  Sender: FDA-Public Use
  Company Number: US-DSJP-DSU-2016-141431

PATIENT

DRUGS (2)
  1. BENICAR [Suspect]
     Active Substance: OLMESARTAN MEDOXOMIL
     Indication: PRODUCT USED FOR UNKNOWN INDICATION
     Dosage: UNK
     Dates: start: 2008
  2. BENICAR HCT [Suspect]
     Active Substance: HYDROCHLOROTHIAZIDE\OLMESARTAN MEDOXOMIL
     Indication: PRODUCT USED FOR UNKNOWN INDICATION
     Dosage: UNK
     Dates: start: 2008

REACTIONS (10)
  - Colitis [Unknown]
  - Myocardial infarction [Unknown]
  - Leukocytosis [Unknown]
  - Hepatic steatosis [Unknown]
  - Hypokalaemia [Unknown]
  - Bronchitis chronic [Unknown]
  - Weight decreased [Unknown]
  - Gastritis [Unknown]
  - Vitamin D deficiency [Unknown]
  - Gastrooesophageal reflux disease [Unknown]
